FAERS Safety Report 4327572-X (Version None)
Quarter: 2004Q1

REPORT INFORMATION
  Report Type: 
  Country: None (occurrence: None)
  Receive Date: 20040325
  Receipt Date: 20040312
  Transmission Date: 20041129
  Serious: Yes (Hospitalization)
  Sender: FDA-Public Use
  Company Number: 04P-056-0253464-00

PATIENT
  Age: 84 Year
  Sex: Male

DRUGS (5)
  1. ISOPTINE (ISOPTIN) (VERAPAMIL) (VERAPMIL) [Suspect]
     Dosage: 240 MG, PER ORAL
     Route: 048
     Dates: start: 20000225, end: 20000306
  2. HEXALYSE [Suspect]
     Dosage: PER ORAL
     Route: 048
     Dates: start: 20000207, end: 20000212
  3. TRIAMTERENE [Suspect]
  4. CLOFOCTOL [Suspect]
     Dosage: 750 MG, RECTAL
     Route: 054
     Dates: start: 20020207, end: 20000212
  5. DILTIAZEM [Concomitant]

REACTIONS (1)
  - PURPURA [None]
